FAERS Safety Report 10081774 (Version 1)
Quarter: 2014Q2

REPORT INFORMATION
  Report Type: Spontaneous
  Country: FR (occurrence: None)
  Receive Date: 20140414
  Receipt Date: 20140414
  Transmission Date: 20141212
  Serious: Yes (Other)
  Sender: FDA-Public Use
  Company Number: FR-ALKEM-000556

PATIENT
  Sex: Male

DRUGS (4)
  1. MYCOPHENOLATE MOFETIL (MYCOPHENOLATE MOFETIL) [Suspect]
     Indication: TRANSPLANT
  2. PREDNISOLONE (PREDNISOLONE) [Suspect]
     Indication: TRANSPLANT
  3. SIROLIMUS [Suspect]
     Indication: TRANSPLANT
  4. TACROLIMUS (TACROLIMUS) [Suspect]
     Indication: TRANSPLANT

REACTIONS (11)
  - Arterial thrombosis [None]
  - Iatrogenic injury [None]
  - Thermal burn [None]
  - Herpes zoster [None]
  - Cellulitis [None]
  - Renal impairment [None]
  - Blood creatinine increased [None]
  - Muscle atrophy [None]
  - Neutropenia [None]
  - Alopecia areata [None]
  - Transplant rejection [None]
